FAERS Safety Report 20004412 (Version 1)
Quarter: 2021Q4

REPORT INFORMATION
  Report Type: Spontaneous
  Country: IN (occurrence: IN)
  Receive Date: 20211027
  Receipt Date: 20211027
  Transmission Date: 20220303
  Serious: Yes (Other)
  Sender: FDA-Public Use
  Company Number: IN-CASPER PHARMA LLC-2021CAS000546

PATIENT
  Age: 38 Year
  Sex: Male

DRUGS (1)
  1. BISMUTH SUBSALICYLATE\METRONIDAZOLE\TETRACYCLINE HYDROCHLORIDE [Suspect]
     Active Substance: BISMUTH SUBSALICYLATE\METRONIDAZOLE\TETRACYCLINE HYDROCHLORIDE
     Indication: Tooth infection
     Dosage: 400 MILLIGRAM, TID
     Route: 048

REACTIONS (1)
  - Deafness neurosensory [Recovered/Resolved]
